FAERS Safety Report 8540020-9 (Version None)
Quarter: 2012Q3

REPORT INFORMATION
  Report Type: 
  Country: None (occurrence: None)
  Receive Date: 20120726
  Receipt Date: 20120717
  Transmission Date: 20120928
  Serious: Yes (Other)
  Sender: FDA-Public Use
  Company Number: US-ASTRAZENECA-2012SE50246

PATIENT
  Age: 77 Year
  Sex: Male
  Weight: 79.4 kg

DRUGS (3)
  1. TOPROL-XL [Suspect]
     Indication: BLOOD PRESSURE ABNORMAL
     Route: 048
  2. SUNOPRIL [Concomitant]
  3. CRESTOR [Suspect]
     Indication: BLOOD CHOLESTEROL INCREASED
     Route: 048

REACTIONS (8)
  - NEOPLASM PROGRESSION [None]
  - INTENTIONAL DRUG MISUSE [None]
  - WEIGHT DECREASED [None]
  - MUSCLE SPASMS [None]
  - LYMPHOMA [None]
  - BLOOD GLUCOSE INCREASED [None]
  - HEPATIC NEOPLASM MALIGNANT [None]
  - OESOPHAGEAL CARCINOMA [None]
